FAERS Safety Report 4359612-6 (Version None)
Quarter: 2004Q2

REPORT INFORMATION
  Report Type: 
  Country: None (occurrence: None)
  Receive Date: 20040513
  Receipt Date: 20040430
  Transmission Date: 20050107
  Serious: Yes (Hospitalization)
  Sender: FDA-Public Use
  Company Number: 206239

PATIENT
  Age: 72 Year
  Sex: Male

DRUGS (8)
  1. AVASTIN [Suspect]
     Dosage: 460 MG, INTRAVENOUS
     Route: 042
     Dates: start: 20040420, end: 20040420
  2. OXALIPLATIN (OXALIPLATIN) [Suspect]
     Indication: COLORECTAL CANCER METASTATIC
     Dosage: 180 MG, INTRAVENOUS
     Route: 042
     Dates: start: 20040420, end: 20040420
  3. FLUOROURACIL [Concomitant]
  4. LEUCOVORIN CALCIUM [Concomitant]
  5. DOLASETRON (DOLASETRON MESYLATE) [Concomitant]
  6. DEXAMETHASONE [Concomitant]
  7. WARFARIN (WARFARIN SODIUM) [Concomitant]
  8. PROCHLORPERAZINE [Concomitant]

REACTIONS (2)
  - RENAL FAILURE ACUTE [None]
  - RESPIRATION ABNORMAL [None]
